FAERS Safety Report 5054490-4 (Version None)
Quarter: 2006Q3

REPORT INFORMATION
  Report Type: 
  Country: None (occurrence: None)
  Receive Date: 20060714
  Receipt Date: 20060710
  Transmission Date: 20061208
  Serious: Yes (Other)
  Sender: FDA-Public Use
  Company Number: 227212

PATIENT
  Sex: Female
  Weight: 66 kg

DRUGS (4)
  1. MABTHERA(RITUXIMAB) CONC FOR SOLUTION FOR INFUSION [Suspect]
     Indication: B-CELL LYMPHOMA
     Dosage: 637.5 MG, INTRAVENOUS
     Route: 042
     Dates: start: 20051224
  2. CYCLOPHOSPHAMIDE [Suspect]
     Indication: B-CELL LYMPHOMA
     Dosage: 1275 MG, INTRAVENOUS
     Route: 042
     Dates: start: 20051224
  3. DOXORUBICIN HCL [Suspect]
     Indication: B-CELL LYMPHOMA
     Dosage: 85 MG, INTRAVENOUS
     Route: 042
     Dates: start: 20051224
  4. VINCRISTINE [Suspect]
     Indication: B-CELL LYMPHOMA
     Dosage: 2 MG, INTRAVENOUS
     Route: 042
     Dates: start: 20051224

REACTIONS (1)
  - NEUTROPENIA [None]
